FAERS Safety Report 24338869 (Version 1)
Quarter: 2024Q3

REPORT INFORMATION
  Report Type: Spontaneous
  Country: ES (occurrence: ES)
  Receive Date: 20240919
  Receipt Date: 20240919
  Transmission Date: 20241017
  Serious: Yes (Hospitalization)
  Sender: MYLAN
  Company Number: ES-MYLANLABS-2024M1084076

PATIENT
  Age: 37 Year
  Sex: Male

DRUGS (10)
  1. PREDNISONE [Suspect]
     Active Substance: PREDNISONE
     Indication: Uveitis
     Dosage: UNK
     Route: 065
  2. PREDNISONE [Suspect]
     Active Substance: PREDNISONE
     Indication: Optic neuritis
     Dosage: UNK
     Route: 061
  3. PREDNISONE [Suspect]
     Active Substance: PREDNISONE
     Indication: Macular oedema
  4. COTRIMOXAZOLE [Suspect]
     Active Substance: SULFAMETHOXAZOLE\TRIMETHOPRIM
     Indication: Uveitis
     Dosage: UNK
     Route: 065
  5. COTRIMOXAZOLE [Suspect]
     Active Substance: SULFAMETHOXAZOLE\TRIMETHOPRIM
     Indication: Optic neuritis
  6. VALACYCLOVIR HYDROCHLORIDE [Suspect]
     Active Substance: VALACYCLOVIR HYDROCHLORIDE
     Indication: Necrotising retinitis
     Dosage: 500 MILLIGRAM, Q8H
     Route: 048
  7. VALACYCLOVIR HYDROCHLORIDE [Suspect]
     Active Substance: VALACYCLOVIR HYDROCHLORIDE
     Indication: Varicella zoster virus infection
  8. FOSCARNET [Suspect]
     Active Substance: FOSCARNET
     Indication: Necrotising retinitis
     Dosage: UNK
  9. FOSCARNET [Suspect]
     Active Substance: FOSCARNET
     Indication: Varicella zoster virus infection
  10. TRIAMCINOLONE [Suspect]
     Active Substance: TRIAMCINOLONE
     Indication: Macular oedema
     Dosage: UNK
     Route: 065

REACTIONS (1)
  - Drug ineffective [Unknown]
